FAERS Safety Report 21623199 (Version 1)
Quarter: 2022Q4

REPORT INFORMATION
  Report Type: Spontaneous
  Country: US (occurrence: None)
  Receive Date: 20221118
  Receipt Date: 20221118
  Transmission Date: 20230113
  Serious: Yes (Hospitalization)
  Sender: FDA-Public Use
  Company Number: None

PATIENT
  Age: 76 Year
  Sex: Female

DRUGS (23)
  1. AMBRISENTAN [Suspect]
     Active Substance: AMBRISENTAN
     Indication: Pulmonary arterial hypertension
     Dosage: FREQUENCY : DAILY;?
     Route: 048
     Dates: start: 20141017
  2. SILDENAFIL [Concomitant]
  3. DILTIAZEM [Concomitant]
     Active Substance: DILTIAZEM
  4. ASPIRIN [Concomitant]
  5. PANTOPRAZOLE [Concomitant]
  6. MONTELUKAST [Concomitant]
  7. ALLOPURINOL [Concomitant]
     Active Substance: ALLOPURINOL
  8. MUPIROCIN TOP OINT [Concomitant]
  9. PREDNISONE [Concomitant]
     Active Substance: PREDNISONE
  10. LEVOTHYROXINE [Concomitant]
  11. ATORVASTATIN [Concomitant]
  12. ALVESCO HFA [Concomitant]
  13. ASTELIN NASAL SPRAY [Concomitant]
  14. CALCIUM 600-D3 [Concomitant]
  15. PLUS MAG-ZINC [Concomitant]
  16. FERROUS GLUCONATE [Concomitant]
  17. VITAMIN B COMPLEX [Concomitant]
  18. ESTRACE VAG CREAM [Concomitant]
  19. CLOBESTASOL TOP OINT [Concomitant]
  20. ALBUTEROL INHL NEB SOLN [Concomitant]
  21. FUROSEMIDE [Concomitant]
  22. POTASSIUM GLUCONATE [Concomitant]
  23. ASCORBIC ACID [Concomitant]

REACTIONS (3)
  - Respiratory failure [None]
  - Pneumonia respiratory syncytial viral [None]
  - Asthma [None]

NARRATIVE: CASE EVENT DATE: 20221114
